FAERS Safety Report 7510054-1 (Version None)
Quarter: 2011Q2

REPORT INFORMATION
  Report Type: 
  Country: None (occurrence: None)
  Receive Date: 20110527
  Receipt Date: 20110518
  Transmission Date: 20111010
  Serious: Yes (Other)
  Sender: FDA-Public Use
  Company Number: US-ASTRAZENECA-2010SE16870

PATIENT
  Age: 63 Year
  Sex: Female
  Weight: 71.7 kg

DRUGS (20)
  1. SEROQUEL [Suspect]
     Route: 048
     Dates: start: 20100101
  2. SEROQUEL [Suspect]
     Route: 048
  3. SEROQUEL [Suspect]
     Route: 048
     Dates: start: 20100101
  4. SEROQUEL [Suspect]
     Route: 048
     Dates: start: 20100901
  5. LAMICTAL [Concomitant]
  6. SEROQUEL [Suspect]
     Route: 048
     Dates: start: 20060101
  7. SEROQUEL [Suspect]
     Route: 048
     Dates: end: 20091201
  8. LEXAPRO [Concomitant]
  9. AMLODIPINE [Concomitant]
  10. THYROID MEDICATION [Concomitant]
  11. SEROQUEL [Suspect]
     Route: 048
  12. SEROQUEL [Suspect]
     Route: 048
  13. SEROQUEL [Suspect]
     Route: 048
     Dates: end: 20091201
  14. SEROQUEL [Suspect]
     Route: 048
     Dates: start: 20100901
  15. LEVOXYL [Concomitant]
     Indication: THYROID DISORDER
  16. SEROQUEL [Suspect]
     Indication: BIPOLAR I DISORDER
     Route: 048
     Dates: start: 20050101
  17. SEROQUEL [Suspect]
     Route: 048
  18. SEROQUEL [Suspect]
     Route: 048
     Dates: start: 20060101
  19. LISINOPRIL [Concomitant]
  20. SEROQUEL [Suspect]
     Route: 048
     Dates: start: 20050101

REACTIONS (18)
  - AORTIC VALVE INCOMPETENCE [None]
  - LOCALISED INFECTION [None]
  - BACK INJURY [None]
  - WRONG TECHNIQUE IN DRUG USAGE PROCESS [None]
  - DIABETES MELLITUS [None]
  - INSOMNIA [None]
  - TACHYPHRENIA [None]
  - MANIA [None]
  - DRUG DOSE OMISSION [None]
  - EATING DISORDER [None]
  - IMPAIRED WORK ABILITY [None]
  - NASOPHARYNGITIS [None]
  - CARDIOMEGALY [None]
  - OEDEMA PERIPHERAL [None]
  - BODY HEIGHT DECREASED [None]
  - ANXIETY [None]
  - WEIGHT DECREASED [None]
  - SOMNOLENCE [None]
